FAERS Safety Report 5267786-8 (Version None)
Quarter: 2007Q1

REPORT INFORMATION
  Report Type: 
  Country: None (occurrence: None)
  Receive Date: 20070316
  Receipt Date: 20070306
  Transmission Date: 20070707
  Serious: Yes (Other)
  Sender: FDA-Public Use
  Company Number: US-PFIZER INC-2007017981

PATIENT
  Sex: Female
  Weight: 79.4 kg

DRUGS (3)
  1. DILANTIN [Suspect]
     Indication: EPILEPSY
  2. DILANTIN [Suspect]
     Indication: GRAND MAL CONVULSION
  3. PHENOBARBITAL TAB [Concomitant]

REACTIONS (2)
  - CONVULSION [None]
  - RASH [None]
